FAERS Safety Report 11993693 (Version 1)
Quarter: 2016Q1

REPORT INFORMATION
  Report Type: Spontaneous
  Country: US (occurrence: None)
  Receive Date: 20160202
  Receipt Date: 20160202
  Transmission Date: 20160526
  Serious: No
  Sender: FDA-Public Use
  Company Number: None

PATIENT
  Age: 26 Year
  Sex: Female
  Weight: 117.94 kg

DRUGS (1)
  1. ARIPIPRAZOLE 30MG CAMBER PHARMACEUTICALS [Suspect]
     Active Substance: ARIPIPRAZOLE
     Indication: AUTISM
     Dosage: QMS
     Route: 048
     Dates: start: 20150430, end: 20150810

REACTIONS (3)
  - Product substitution issue [None]
  - Disease recurrence [None]
  - Condition aggravated [None]

NARRATIVE: CASE EVENT DATE: 20150810
